FAERS Safety Report 12399201 (Version 3)
Quarter: 2016Q2

REPORT INFORMATION
  Report Type: Spontaneous
  Country: IT (occurrence: IT)
  Receive Date: 20160524
  Receipt Date: 20160604
  Transmission Date: 20160815
  Serious: Yes (Other)
  Sender: FDA-Public Use
  Company Number: IT-009507513-1604ITA017018

PATIENT
  Age: 75 Year
  Sex: Male
  Weight: 80 kg

DRUGS (6)
  1. REBETOL [Suspect]
     Active Substance: RIBAVIRIN
     Indication: HEPATITIS C
     Dosage: 6 DOSES, QD
     Route: 048
     Dates: start: 20160127, end: 20160217
  2. LOBIDIUR [Suspect]
     Active Substance: HYDROCHLOROTHIAZIDE\NEBIVOLOL HYDROCHLORIDE
     Indication: HYPERTENSION
     Dosage: 2 DOSES, DAILY
     Route: 048
     Dates: start: 20150901, end: 20160208
  3. VIEKIRAX [Interacting]
     Active Substance: OMBITASVIR\PARITAPREVIR\RITONAVIR
     Indication: HEPATITIS C
     Dosage: 2 DOSES, QD
     Route: 048
     Dates: start: 20160127, end: 20160217
  4. EXVIERA [Interacting]
     Active Substance: DASABUVIR
     Indication: HEPATITIS C
     Dosage: 2 DOSES, QD
     Route: 048
     Dates: start: 20160127, end: 20160217
  5. DELAPRIDE [Suspect]
     Active Substance: DELAPRIL HYDROCHLORIDE\INDAPAMIDE
     Indication: HYPERTENSION
     Dosage: 1 DOSE, DAILY
     Route: 048
     Dates: start: 20150901, end: 20160204
  6. CARDURA [Interacting]
     Active Substance: DOXAZOSIN MESYLATE
     Indication: HYPERTENSION
     Dosage: 4 MG, DAILY
     Route: 048
     Dates: start: 20150901, end: 20160201

REACTIONS (2)
  - Hypotension [Recovering/Resolving]
  - Fatigue [Recovering/Resolving]

NARRATIVE: CASE EVENT DATE: 20160127
